FAERS Safety Report 19133304 (Version 3)
Quarter: 2021Q2

REPORT INFORMATION
  Report Type: Report from Study
  Country: None (occurrence: CA)
  Receive Date: 20210413
  Receipt Date: 20210617
  Transmission Date: 20210717
  Serious: No
  Sender: FDA-Public Use
  Company Number: CA-ABBVIE-21K-028-3852577-00

PATIENT
  Age: 65 Year
  Sex: Female

DRUGS (4)
  1. METHOTREXATE. [Concomitant]
     Active Substance: METHOTREXATE
     Indication: PRODUCT USED FOR UNKNOWN INDICATION
  2. RINVOQ [Suspect]
     Active Substance: UPADACITINIB
     Indication: RHEUMATOID ARTHRITIS
     Route: 048
     Dates: start: 20210320
  3. RINVOQ [Suspect]
     Active Substance: UPADACITINIB
     Route: 048
  4. PLAQUENIL [Concomitant]
     Active Substance: HYDROXYCHLOROQUINE SULFATE
     Indication: PRODUCT USED FOR UNKNOWN INDICATION

REACTIONS (12)
  - Pain [Unknown]
  - Arthropathy [Recovering/Resolving]
  - Back pain [Unknown]
  - Therapeutic product effect incomplete [Unknown]
  - Burning sensation [Unknown]
  - Feeling cold [Unknown]
  - Arthralgia [Unknown]
  - Erythema [Unknown]
  - Osteitis [Unknown]
  - Musculoskeletal stiffness [Unknown]
  - Mobility decreased [Unknown]
  - Arthropathy [Unknown]

NARRATIVE: CASE EVENT DATE: 2021
